FAERS Safety Report 9785435 (Version 1)
Quarter: 2013Q4

REPORT INFORMATION
  Report Type: Spontaneous
  Country: US (occurrence: US)
  Receive Date: 20131227
  Receipt Date: 20131227
  Transmission Date: 20140711
  Serious: No
  Sender: FDA-Public Use
  Company Number: US-BAYER-2013-157035

PATIENT
  Age: 45 Year
  Sex: Male

DRUGS (1)
  1. GADAVIST [Suspect]
     Indication: SCAN
     Dosage: 10 ML, ONCE
     Route: 042

REACTIONS (1)
  - Vomiting [None]
